FAERS Safety Report 21455545 (Version 18)
Quarter: 2023Q4

REPORT INFORMATION
  Report Type: Spontaneous
  Country: CA (occurrence: CA)
  Receive Date: 20221014
  Receipt Date: 20231121
  Transmission Date: 20240110
  Serious: Yes (Other)
  Sender: FDA-Public Use
  Company Number: CA-CELLTRION INC.-2022CA015792

PATIENT

DRUGS (36)
  1. INFLECTRA [Suspect]
     Active Substance: INFLIXIMAB-DYYB
     Indication: Crohn^s disease
     Dosage: 5 MG/KG, WEEK 0,2,6 THEN Q 8 WEEKS
     Route: 042
     Dates: start: 20220823
  2. INFLECTRA [Suspect]
     Active Substance: INFLIXIMAB-DYYB
     Dosage: 5 MG/KG, WEEK 0,2,6 THEN Q 8 WEEKS
     Route: 042
     Dates: start: 20220907
  3. INFLECTRA [Suspect]
     Active Substance: INFLIXIMAB-DYYB
     Dosage: 5 MG/KG, WEEK 0,2,6 THEN Q 8 WEEKS
     Route: 042
     Dates: start: 20221003
  4. INFLECTRA [Suspect]
     Active Substance: INFLIXIMAB-DYYB
     Dosage: 5 MG/KG, WEEK 0,2,6 THEN Q 8 WEEKS
     Route: 042
     Dates: start: 20221003
  5. INFLECTRA [Suspect]
     Active Substance: INFLIXIMAB-DYYB
     Dosage: 5 MG/KG, WEEK 0,2,6 THEN Q 8 WEEKS
     Route: 042
     Dates: start: 20221222
  6. INFLECTRA [Suspect]
     Active Substance: INFLIXIMAB-DYYB
     Dosage: 680 MG, EVERY 10 WEEKS
     Route: 042
     Dates: start: 20230306
  7. INFLECTRA [Suspect]
     Active Substance: INFLIXIMAB-DYYB
     Dosage: 680 MG , EVERY 10 WEEKS
     Route: 042
     Dates: start: 20230630
  8. INFLECTRA [Suspect]
     Active Substance: INFLIXIMAB-DYYB
     Dosage: 675 MG/KG, AFTER 10 WEEKS (PRESCRIBED 5 MG/KG, (WEEK 0,2,6 THEN Q 8 WEEKS)
     Route: 042
     Dates: start: 20230912
  9. ALPRAZOLAM [Concomitant]
     Active Substance: ALPRAZOLAM
     Dosage: UNK
  10. BETADERM [Concomitant]
     Active Substance: BETAMETHASONE VALERATE
     Dosage: UNK
  11. BUDESONIDE [Concomitant]
     Active Substance: BUDESONIDE
     Dosage: UNK
  12. CYCLOBENZAPRINE [Concomitant]
     Active Substance: CYCLOBENZAPRINE
     Dosage: UNK
  13. DUOLUBE [Concomitant]
     Dosage: UNK
  14. DOMPERIDONE [Concomitant]
     Active Substance: DOMPERIDONE
     Dosage: UNK
  15. DILTIAZEM [Concomitant]
     Active Substance: DILTIAZEM
     Dosage: UNK
  16. DEEP RELIEF [Concomitant]
     Dosage: UNK
  17. DERMAFLEX [LIDOCAINE] [Concomitant]
     Dosage: UNK
  18. FOLIC ACID [Concomitant]
     Active Substance: FOLIC ACID
     Dosage: UNK
  19. FOSFOMYCIN [Concomitant]
     Active Substance: FOSFOMYCIN
     Dosage: UNK
  20. FUSIDATE SODIUM [Concomitant]
     Active Substance: FUSIDATE SODIUM
     Dosage: UNK
  21. INFLUENZA VIRUS VACCINE [Concomitant]
     Active Substance: INFLUENZA VIRUS VACCINE
     Dosage: UNK, SINGLE
  22. IRBESARTAN [Concomitant]
     Active Substance: IRBESARTAN
     Dosage: UNK
  23. METHOTREXATE SODIUM [Concomitant]
     Active Substance: METHOTREXATE SODIUM
     Dosage: 15 MG
     Route: 065
  24. MOMETASONE [Concomitant]
     Active Substance: MOMETASONE
     Dosage: UNK
  25. MURON [MUPIROCIN] [Concomitant]
     Dosage: UNK
  26. MEDROXYPROGESTERONE ACETATE [Concomitant]
     Active Substance: MEDROXYPROGESTERONE ACETATE
     Dosage: UNK
  27. CHOLESTYRAMINE [Concomitant]
     Active Substance: CHOLESTYRAMINE
     Dosage: UNK
  28. PREMARIN [Concomitant]
     Active Substance: ESTROGENS, CONJUGATED
     Dosage: UNK
  29. RABEPRAZOLE [Concomitant]
     Active Substance: RABEPRAZOLE
     Dosage: UNK
  30. REFRESH PLUS [Concomitant]
     Active Substance: CARBOXYMETHYLCELLULOSE SODIUM
     Dosage: UNK
  31. SYMBICORT [Concomitant]
     Active Substance: BUDESONIDE\FORMOTEROL FUMARATE DIHYDRATE
     Dosage: UNK
  32. TRAZODONE HCL [Concomitant]
     Active Substance: TRAZODONE HYDROCHLORIDE
     Dosage: UNK
  33. TYLENOL [Concomitant]
     Active Substance: ACETAMINOPHEN
     Dosage: UNK
  34. TRINTELLIX [Concomitant]
     Active Substance: VORTIOXETINE HYDROBROMIDE
     Dosage: 5 MG
  35. CYANOCOBALAMIN [Concomitant]
     Active Substance: CYANOCOBALAMIN
     Dosage: UNK
  36. CHOLECALCIFEROL [Concomitant]
     Active Substance: CHOLECALCIFEROL
     Dosage: UNK

REACTIONS (30)
  - Haemorrhage [Unknown]
  - Uterine polyp [Unknown]
  - Lower respiratory tract infection [Not Recovered/Not Resolved]
  - Uterine leiomyoma [Recovered/Resolved]
  - Ovarian mass [Unknown]
  - Vaginal discharge [Not Recovered/Not Resolved]
  - Flatulence [Not Recovered/Not Resolved]
  - Stress [Unknown]
  - Uterine mass [Not Recovered/Not Resolved]
  - Constipation [Not Recovered/Not Resolved]
  - Swelling [Not Recovered/Not Resolved]
  - COVID-19 [Unknown]
  - Depression [Unknown]
  - Productive cough [Recovered/Resolved]
  - Cough [Not Recovered/Not Resolved]
  - Asthma [Unknown]
  - Polyuria [Unknown]
  - Haemorrhoids [Unknown]
  - Haemorrhoidal haemorrhage [Unknown]
  - Urinary tract infection [Recovered/Resolved]
  - Genitourinary symptom [Unknown]
  - Urine analysis abnormal [Unknown]
  - Dysuria [Not Recovered/Not Resolved]
  - Pollakiuria [Not Recovered/Not Resolved]
  - Abdominal pain upper [Not Recovered/Not Resolved]
  - Diarrhoea [Not Recovered/Not Resolved]
  - Chest pain [Unknown]
  - Pain in extremity [Unknown]
  - Off label use [Unknown]
  - Inappropriate schedule of product administration [Unknown]

NARRATIVE: CASE EVENT DATE: 20220101
